FAERS Safety Report 12724123 (Version 1)
Quarter: 2016Q3

REPORT INFORMATION
  Report Type: Spontaneous
  Country: US (occurrence: US)
  Receive Date: 20160907
  Receipt Date: 20160907
  Transmission Date: 20161109
  Serious: Yes (Hospitalization, Disabling, Other)
  Sender: FDA-Public Use
  Company Number: None

PATIENT
  Age: 64 Year
  Sex: Male
  Weight: 130.5 kg

DRUGS (3)
  1. ACTOS PLUS [Concomitant]
  2. BESYLATE [Concomitant]
  3. INVOKANA [Suspect]
     Active Substance: CANAGLIFLOZIN
     Indication: GLYCOSYLATED HAEMOGLOBIN INCREASED
     Dates: start: 20150213, end: 20160418

REACTIONS (5)
  - Staphylococcal infection [None]
  - Impaired healing [None]
  - Toe amputation [None]
  - Ketoacidosis [None]
  - Gangrene [None]

NARRATIVE: CASE EVENT DATE: 20160428
